FAERS Safety Report 7141215-1 (Version None)
Quarter: 2010Q4

REPORT INFORMATION
  Report Type: 
  Country: None (occurrence: None)
  Receive Date: 20101203
  Receipt Date: 20101203
  Transmission Date: 20110411
  Serious: No
  Sender: FDA-Public Use
  Company Number: None

PATIENT
  Age: 45 Year
  Sex: Female
  Weight: 60.3284 kg

DRUGS (8)
  1. LUPRON DEPOT [Suspect]
     Indication: BREAST CANCER
     Dosage: MONTHLY IM
     Route: 030
     Dates: start: 20100301, end: 20101201
  2. LUPRON DEPOT [Suspect]
     Indication: OESTROGEN RECEPTOR ASSAY POSITIVE
     Dosage: MONTHLY IM
     Route: 030
     Dates: start: 20100301, end: 20101201
  3. TAMOXIFEN CITRATE [Concomitant]
  4. EFFEXOR [Concomitant]
  5. ADDERALL 10 [Concomitant]
  6. STRATTERRA [Concomitant]
  7. FOLBIC [Concomitant]
  8. AMBIEN [Concomitant]

REACTIONS (7)
  - ANXIETY [None]
  - ARTHRALGIA [None]
  - BONE PAIN [None]
  - DEPRESSION [None]
  - MEMORY IMPAIRMENT [None]
  - MOOD ALTERED [None]
  - VISUAL IMPAIRMENT [None]
